FAERS Safety Report 8771186 (Version 2)
Quarter: 2012Q4

REPORT INFORMATION
  Report Type: 
  Country: GB (occurrence: GB)
  Receive Date: 20120906
  Receipt Date: 20121018
  Transmission Date: 20130627
  Serious: Yes (Hospitalization)
  Sender: FDA-Public Use
  Company Number: GB-PFIZER INC-2012218512

PATIENT
  Age: 2 Year
  Sex: Male

DRUGS (10)
  1. CISPLATIN [Suspect]
     Indication: NEUROBLASTOMA
     Dosage: UNK
     Route: 065
  2. CARBOPLATIN [Suspect]
     Indication: NEUROBLASTOMA
     Dosage: UNK
  3. VINCRISTINE [Concomitant]
     Indication: NEUROBLASTOMA
     Dosage: UNK
     Route: 065
  4. CYCLOPHOSPHAMIDE [Concomitant]
     Indication: NEUROBLASTOMA
     Dosage: UNK
     Route: 065
  5. ETOPOSIDE [Concomitant]
     Indication: NEUROBLASTOMA
     Dosage: UNK
     Route: 065
  6. HYDROCORTISONE [Concomitant]
     Indication: ADRENOGENITAL SYNDROME
     Dosage: daily supplements
     Route: 065
  7. BUSULPHAN [Concomitant]
     Dosage: UNK
  8. MELPHALAN [Concomitant]
  9. FLUDROCORTISONE [Concomitant]
     Indication: ADRENOGENITAL SYNDROME
  10. ISOTRETINOIN [Concomitant]
     Indication: ADRENOGENITAL SYNDROME
     Dosage: UNK

REACTIONS (2)
  - Renal tubular disorder [Unknown]
  - Electrolyte imbalance [Recovering/Resolving]
